FAERS Safety Report 7349389-4 (Version None)
Quarter: 2011Q1

REPORT INFORMATION
  Report Type: 
  Country: None (occurrence: None)
  Receive Date: 20110303
  Receipt Date: 20110223
  Transmission Date: 20110831
  Serious: Yes (Hospitalization)
  Sender: FDA-Public Use
  Company Number: US-JNJFOC-20100705700

PATIENT
  Age: 74 Year
  Sex: Male
  Weight: 96 kg

DRUGS (13)
  1. LIPITOR (ATORVASTATIN CALICUM) [Concomitant]
  2. ASPIRIN [Concomitant]
  3. DACOGEN [Suspect]
     Indication: MYELODYSPLASTIC SYNDROME
     Dosage: 20 MG/M2, INTRAVENOUS ; 20 MG/M2, INTRAVENOUS ; 20 MG/M2, INTRAVENOUS
     Route: 042
     Dates: start: 20100222
  4. DACOGEN [Suspect]
     Indication: MYELODYSPLASTIC SYNDROME
     Dosage: 20 MG/M2, INTRAVENOUS ; 20 MG/M2, INTRAVENOUS ; 20 MG/M2, INTRAVENOUS
     Route: 042
     Dates: start: 20100621
  5. DACOGEN [Suspect]
     Indication: MYELODYSPLASTIC SYNDROME
     Dosage: 20 MG/M2, INTRAVENOUS ; 20 MG/M2, INTRAVENOUS ; 20 MG/M2, INTRAVENOUS
     Route: 042
     Dates: end: 20100625
  6. VALACYCLOVIR (VALACICLOVIR) [Concomitant]
  7. POTASSIUM (POTASSIUM) [Concomitant]
  8. LASIX [Concomitant]
  9. LISINOPRIL [Concomitant]
  10. JANUVIA [Concomitant]
  11. GABAPENTIN [Concomitant]
  12. METFORMIN (METFORMIN) [Concomitant]
  13. CEFTIN [Concomitant]

REACTIONS (15)
  - OEDEMA PERIPHERAL [None]
  - ASTHENIA [None]
  - CONTUSION [None]
  - LETHARGY [None]
  - COORDINATION ABNORMAL [None]
  - STOMATITIS [None]
  - HYPOTENSION [None]
  - FUNGAL SKIN INFECTION [None]
  - FEBRILE NEUTROPENIA [None]
  - ASPERGILLOSIS [None]
  - LIP PAIN [None]
  - THROMBOCYTOPENIA [None]
  - LIP SWELLING [None]
  - HEAD INJURY [None]
  - CONFUSIONAL STATE [None]
